FAERS Safety Report 10152526 (Version 2)
Quarter: 2014Q2

REPORT INFORMATION
  Report Type: Spontaneous
  Country: AU (occurrence: AU)
  Receive Date: 20140505
  Receipt Date: 20140513
  Transmission Date: 20141212
  Serious: Yes (Hospitalization)
  Sender: FDA-Public Use
  Company Number: CHNY2014AU001125

PATIENT
  Age: 27 Year
  Sex: Male

DRUGS (2)
  1. DICLOFENAC POTASSIUM [Suspect]
     Dosage: 2 DF, UNK
     Route: 048
  2. PANADOL [Suspect]
     Dosage: 4 DF, UNK
     Route: 048

REACTIONS (7)
  - Panic attack [Unknown]
  - Paranoia [Unknown]
  - Hallucination [Unknown]
  - Aggression [Unknown]
  - Confusional state [Unknown]
  - Feeling drunk [Unknown]
  - Disorientation [Unknown]
